FAERS Safety Report 7464699-8 (Version None)
Quarter: 2011Q2

REPORT INFORMATION
  Report Type: 
  Country: None (occurrence: None)
  Receive Date: 20110509
  Receipt Date: 20110425
  Transmission Date: 20111010
  Serious: Yes (Hospitalization)
  Sender: FDA-Public Use
  Company Number: US-CELGENEUS-163-21880-11033622

PATIENT
  Sex: Female

DRUGS (5)
  1. PROGRAF [Concomitant]
     Indication: TRANSPLANT
     Dosage: 5 MILLIGRAM/SQ. METER
     Route: 065
     Dates: start: 20060101, end: 20110301
  2. ANTIBIOTICS [Concomitant]
     Route: 065
  3. REVLIMID [Suspect]
     Indication: MYELODYSPLASTIC SYNDROME
     Dosage: 5 MILLIGRAM
     Route: 048
  4. REVLIMID [Suspect]
     Dosage: 10 MILLIGRAM
     Route: 048
     Dates: start: 20110201, end: 20110301
  5. CELL CEPT [Concomitant]
     Indication: TRANSPLANT REJECTION
     Dosage: 360 MILLIGRAM/SQ. METER
     Route: 065
     Dates: start: 20060101, end: 20110301

REACTIONS (2)
  - PANCREATIC ABSCESS [None]
  - COMPLICATIONS OF TRANSPLANTED PANCREAS [None]
